FAERS Safety Report 10223177 (Version 1)
Quarter: 2014Q2

REPORT INFORMATION
  Report Type: Report from Study
  Country: GB (occurrence: GB)
  Receive Date: 20140608
  Receipt Date: 20140608
  Transmission Date: 20141212
  Serious: Yes (Hospitalization)
  Sender: FDA-Public Use
  Company Number: GB-AMGEN INC.-GBRCT2014042310

PATIENT
  Age: 55 Year
  Sex: Male
  Weight: 83 kg

DRUGS (10)
  1. ETANERCEPT [Suspect]
     Indication: PRODUCT USED FOR UNKNOWN INDICATION
     Dosage: 50 MG, QWK
     Route: 065
     Dates: start: 20121031
  2. OMEPRAZOLE [Concomitant]
     Dosage: UNK
     Dates: start: 20120727
  3. ATORVASTATIN [Concomitant]
     Dosage: UNK
     Dates: start: 20120716
  4. SECURON [Concomitant]
     Dosage: UNK
     Dates: start: 20120716
  5. ASPIRIN [Concomitant]
     Dosage: UNK
     Dates: start: 20090529
  6. MONOMAX [Concomitant]
     Dosage: UNK
     Dates: start: 20101101
  7. RAMIPRIL [Concomitant]
     Dosage: UNK
     Dates: start: 20101101
  8. VENLAFAXINE [Concomitant]
     Dosage: UNK
     Dates: start: 20080107
  9. PRIADEL                            /00033702/ [Concomitant]
     Dosage: UNK
     Dates: start: 20080107
  10. FUROSEMIDE [Concomitant]
     Dosage: UNK
     Dates: start: 20131201

REACTIONS (1)
  - Chest pain [Unknown]
